FAERS Safety Report 14376322 (Version 1)
Quarter: 2018Q1

REPORT INFORMATION
  Report Type: Spontaneous
  Country: GB (occurrence: GB)
  Receive Date: 20180111
  Receipt Date: 20180111
  Transmission Date: 20180509
  Serious: Yes (Other)
  Sender: FDA-Public Use
  Company Number: GB-PFIZER INC-2018008553

PATIENT
  Age: 70 Year
  Sex: Female
  Weight: 87 kg

DRUGS (14)
  1. EZETIMIBE. [Concomitant]
     Active Substance: EZETIMIBE
     Dosage: 1 DF, 1X/DAY
     Dates: start: 20171215
  2. OMEPRAZOLE. [Concomitant]
     Active Substance: OMEPRAZOLE
     Dosage: 2 DF, DAILY
     Dates: start: 20161216
  3. VOLTAROL /00372303/ [Concomitant]
     Active Substance: DICLOFENAC DIETHYLAMINE
     Dosage: 2 DF, DAILY
     Dates: start: 20170308, end: 20171109
  4. PARACETAMOL [Concomitant]
     Active Substance: ACETAMINOPHEN
     Dosage: 8 DF, DAILY
     Dates: start: 20171027, end: 20171103
  5. ATORVASTATIN [Suspect]
     Active Substance: ATORVASTATIN
     Dosage: UNK
     Dates: start: 20161216
  6. LIQUIFILM TEARS [Concomitant]
     Active Substance: POLYVINYL ALCOHOL
     Dosage: 1-2 DROPS (AS NECESSARY)
     Dates: start: 20170502
  7. COLESTYRAMINE [Concomitant]
     Active Substance: CHOLESTYRAMINE
     Dosage: 2-3 PER DAY AS DIRECTED BY HOSPITAL
     Dates: start: 20160126
  8. FENBID [Concomitant]
     Active Substance: IBUPROFEN
     Dosage: 3 DF, DAILY
     Dates: start: 20171109
  9. TIMOLOL. [Concomitant]
     Active Substance: TIMOLOL
     Dosage: 1 GTT, 1X/DAY BOTH EYES
     Route: 050
     Dates: start: 20170731
  10. AMLODIPINE [Concomitant]
     Active Substance: AMLODIPINE BESYLATE
     Dosage: 1 DF, 1X/DAY
     Dates: start: 20161216
  11. METFORMIN [Concomitant]
     Active Substance: METFORMIN HYDROCHLORIDE
     Dosage: 4 DF, DAILY (BEFORE FOOD)
     Dates: start: 20161216
  12. SIMVASTATIN. [Concomitant]
     Active Substance: SIMVASTATIN
     Dosage: 1 DF, 1X/DAY (AT NIGHT)
     Dates: start: 20171109, end: 20171207
  13. PIOGLITAZONE. [Concomitant]
     Active Substance: PIOGLITAZONE
     Dosage: 1 DF, 1X/DAY
     Dates: start: 20161216
  14. LOPERAMIDE [Concomitant]
     Active Substance: LOPERAMIDE
     Dosage: 2 IMMEDIATELY THEN 1 WITH EACH LOOSE MOTION
     Dates: start: 20170731

REACTIONS (2)
  - Alopecia [Recovered/Resolved]
  - Myalgia [Recovered/Resolved]

NARRATIVE: CASE EVENT DATE: 20171215
